FAERS Safety Report 17343483 (Version 1)
Quarter: 2020Q1

REPORT INFORMATION
  Report Type: Spontaneous
  Country: US (occurrence: US)
  Receive Date: 20200129
  Receipt Date: 20200129
  Transmission Date: 20200409
  Serious: No
  Sender: FDA-Public Use
  Company Number: US-ALLERGAN-1900988US

PATIENT
  Age: 58 Year
  Sex: Female

DRUGS (2)
  1. BOTOX COSMETIC [Suspect]
     Active Substance: ONABOTULINUMTOXINA
     Indication: SKIN WRINKLING
     Dosage: ACTUAL: 10 UNITS TO EACH SIDE OF EYES (TOTAL: 20 UNITS), 20 UNITS TO GLABELA, 10 UNITS TO FOREHEAD
     Route: 030
     Dates: start: 20181121, end: 20181121
  2. BOTOX COSMETIC [Suspect]
     Active Substance: ONABOTULINUMTOXINA
     Indication: SKIN WRINKLING

REACTIONS (3)
  - Drug ineffective [Unknown]
  - Multiple use of single-use product [Unknown]
  - Product preparation error [Unknown]

NARRATIVE: CASE EVENT DATE: 20181121
